FAERS Safety Report 10434656 (Version 2)
Quarter: 2014Q3

REPORT INFORMATION
  Report Type: Spontaneous
  Country: US (occurrence: US)
  Receive Date: 20140906
  Receipt Date: 20140906
  Transmission Date: 20150326
  Serious: Yes (Other)
  Sender: FDA-Public Use
  Company Number: US-JNJFOC-20140619094

PATIENT
  Age: 40 Year
  Sex: Male
  Weight: 124.74 kg

DRUGS (2)
  1. LISTERINE TOTAL CARE PLUS WHITENING [Suspect]
     Active Substance: SODIUM FLUORIDE
     Indication: DENTAL DISORDER PROPHYLAXIS
     Dosage: SMALL AMOUNT ONCE A DAY
     Route: 049
     Dates: start: 20140614, end: 20140621
  2. ALLOPURINOL. [Concomitant]
     Active Substance: ALLOPURINOL
     Indication: GOUT
     Route: 065

REACTIONS (8)
  - Streptococcal infection [Recovering/Resolving]
  - Pyrexia [Not Recovered/Not Resolved]
  - Nausea [Unknown]
  - Gingival erythema [Unknown]
  - Gingival pain [Not Recovered/Not Resolved]
  - Diarrhoea [Unknown]
  - Sensory disturbance [Not Recovered/Not Resolved]
  - Aphthous stomatitis [Not Recovered/Not Resolved]

NARRATIVE: CASE EVENT DATE: 20140622
